FAERS Safety Report 9479608 (Version 1)
Quarter: 2013Q3

REPORT INFORMATION
  Report Type: Report from Study
  Country: US (occurrence: US)
  Receive Date: 20130827
  Receipt Date: 20130827
  Transmission Date: 20140515
  Serious: No
  Sender: FDA-Public Use
  Company Number: PHEH2013US017928

PATIENT
  Age: 81 Year
  Sex: Male

DRUGS (6)
  1. TASIGNA [Suspect]
     Indication: CHRONIC MYELOID LEUKAEMIA
     Dosage: 400 MG, Q12H
     Route: 048
     Dates: start: 20130723
  2. LISINOPRIL [Concomitant]
  3. ATORVASTATIN [Concomitant]
  4. HEMAX [Concomitant]
  5. FINASTERIDE [Concomitant]
  6. VITAMIN D [Concomitant]

REACTIONS (1)
  - Fatigue [Not Recovered/Not Resolved]
